FAERS Safety Report 5426119-4 (Version None)
Quarter: 2007Q3

REPORT INFORMATION
  Report Type: 
  Country: None (occurrence: None)
  Receive Date: 20070827
  Receipt Date: 20070823
  Transmission Date: 20080115
  Serious: Yes (Death, Hospitalization)
  Sender: FDA-Public Use
  Company Number: DE-BAYER-200710884BVD

PATIENT
  Age: 79 Year
  Sex: Male
  Weight: 65 kg

DRUGS (9)
  1. NEXAVAR [Suspect]
     Indication: RENAL CELL CARCINOMA STAGE UNSPECIFIED
     Route: 048
     Dates: start: 20070605, end: 20070617
  2. NEXAVAR [Suspect]
     Route: 048
     Dates: start: 20070618, end: 20070625
  3. MCP [Concomitant]
     Route: 048
     Dates: start: 20070607, end: 20070618
  4. PERFALGAN [Concomitant]
     Route: 042
     Dates: start: 20070418, end: 20070624
  5. NOVALGIN [Concomitant]
     Route: 048
     Dates: start: 20070618, end: 20070629
  6. HEPARIN [Concomitant]
     Route: 058
     Dates: start: 20070620, end: 20070629
  7. FRESUBIN [Concomitant]
     Route: 048
     Dates: start: 20070618, end: 20070629
  8. ELACUTAN CREAM [Concomitant]
     Route: 061
     Dates: start: 20070607, end: 20070629
  9. NUTRIPERI [Concomitant]
     Route: 042
     Dates: start: 20070618, end: 20070629

REACTIONS (9)
  - ANOREXIA [None]
  - ASTHENIA [None]
  - FATIGUE [None]
  - JAUNDICE [None]
  - MUCOUS MEMBRANE DISORDER [None]
  - PALMAR-PLANTAR ERYTHRODYSAESTHESIA SYNDROME [None]
  - PULMONARY OEDEMA [None]
  - PYREXIA [None]
  - WEIGHT DECREASED [None]
